FAERS Safety Report 20999523 (Version 1)
Quarter: 2022Q2

REPORT INFORMATION
  Report Type: Spontaneous
  Country: PT (occurrence: PT)
  Receive Date: 20220623
  Receipt Date: 20220623
  Transmission Date: 20220721
  Serious: Yes (Hospitalization, Other)
  Sender: FDA-Public Use
  Company Number: PT-GILEAD-2022-0585057

PATIENT
  Age: 54 Year
  Sex: Female

DRUGS (8)
  1. VORICONAZOLE [Suspect]
     Active Substance: VORICONAZOLE
     Indication: Aspergillus infection
     Dosage: LOADING DOSE
     Route: 065
     Dates: start: 20220106
  2. VORICONAZOLE [Suspect]
     Active Substance: VORICONAZOLE
     Dosage: 200 MG, 2X/DAY MAINTANCE DOSE
     Route: 065
     Dates: start: 20220114, end: 2022
  3. VEKLURY [Suspect]
     Active Substance: REMDESIVIR
     Indication: COVID-19
     Dosage: UNK
     Route: 065
  4. AMBISOME [Suspect]
     Active Substance: AMPHOTERICIN B
     Indication: Aspergillus infection
     Dosage: UNK
     Route: 065
     Dates: start: 20211214, end: 20220106
  5. AMBISOME [Suspect]
     Active Substance: AMPHOTERICIN B
     Dosage: UNK
     Route: 065
     Dates: start: 20220117, end: 20220129
  6. PNEUMOVAX II [Concomitant]
     Active Substance: PNEUMOCOCCAL VACCINE POLYVALENT
     Dosage: UNK
  7. COVID-19 VACCINE DNA [Concomitant]
     Indication: COVID-19 immunisation
     Dosage: DOSE 1, SINGLE
     Dates: start: 202104, end: 202104
  8. COVID-19 VACCINE DNA [Concomitant]
     Dosage: DOSE 2, SINGLE
     Dates: start: 202105, end: 202105

REACTIONS (3)
  - Organising pneumonia [Recovered/Resolved]
  - Rash maculo-papular [Recovered/Resolved]
  - Rash [Recovered/Resolved]

NARRATIVE: CASE EVENT DATE: 20220101
